FAERS Safety Report 10287283 (Version 2)
Quarter: 2014Q3

REPORT INFORMATION
  Report Type: Report from Study
  Country: CO (occurrence: None)
  Receive Date: 20140707
  Receipt Date: 20140728
  Transmission Date: 20150326
  Serious: Yes (Hospitalization, Other)
  Sender: FDA-Public Use
  Company Number: 2014-19880

PATIENT
  Age: 86 Year
  Sex: Female

DRUGS (4)
  1. VALSARTAN. [Concomitant]
     Active Substance: VALSARTAN
  2. METOPROLOL [Concomitant]
     Active Substance: METOPROLOL
  3. EYLEA [Suspect]
     Active Substance: AFLIBERCEPT
     Indication: AGE-RELATED MACULAR DEGENERATION
     Dates: start: 201312
  4. FUROSEMIDA [Concomitant]
     Active Substance: FUROSEMIDE

REACTIONS (6)
  - Cerebral haematoma [None]
  - Urinary tract infection [None]
  - Fall [None]
  - Brain contusion [None]
  - Renal disorder [None]
  - Arrhythmia [None]

NARRATIVE: CASE EVENT DATE: 201402
